FAERS Safety Report 17328238 (Version 3)
Quarter: 2020Q4

REPORT INFORMATION
  Report Type: Spontaneous
  Country: US (occurrence: US)
  Receive Date: 20200127
  Receipt Date: 20201105
  Transmission Date: 20210113
  Serious: Yes (Hospitalization)
  Sender: FDA-Public Use
  Company Number: US-VIFOR (INTERNATIONAL) INC.-VIT-2020-00458

PATIENT
  Age: 58 Year
  Sex: Female

DRUGS (33)
  1. ZOLOFT [Concomitant]
     Active Substance: SERTRALINE HYDROCHLORIDE
     Dates: start: 20050805
  2. SYNTHROID [Concomitant]
     Active Substance: LEVOTHYROXINE SODIUM
     Dates: start: 20050805
  3. SERTRALINE [Concomitant]
     Active Substance: SERTRALINE HYDROCHLORIDE
     Dates: start: 20190712
  4. SERTRALINE [Concomitant]
     Active Substance: SERTRALINE HYDROCHLORIDE
     Dates: start: 20200207
  5. AMLODIPINE [Concomitant]
     Active Substance: AMLODIPINE BESYLATE
     Dates: start: 20191013
  6. AMLODIPINE [Concomitant]
     Active Substance: AMLODIPINE BESYLATE
     Dates: start: 20200108
  7. GABAPENTIN. [Concomitant]
     Active Substance: GABAPENTIN
     Dates: start: 20200120
  8. ESTRADIOL. [Concomitant]
     Active Substance: ESTRADIOL
     Dates: start: 20200312
  9. CLONIDINE. [Concomitant]
     Active Substance: CLONIDINE
     Dates: start: 20190925
  10. AURYXIA [Concomitant]
     Active Substance: TETRAFERRIC TRICITRATE DECAHYDRATE
     Dates: start: 20191010
  11. AMLODIPINE [Concomitant]
     Active Substance: AMLODIPINE BESYLATE
     Dates: start: 20200308
  12. AMLODIPINE [Concomitant]
     Active Substance: AMLODIPINE BESYLATE
     Dates: start: 20200309
  13. ALLOPURINOL. [Concomitant]
     Active Substance: ALLOPURINOL
  14. CALCITRIOL. [Concomitant]
     Active Substance: CALCITRIOL
     Dates: start: 20190524, end: 20200108
  15. CALCITRIOL. [Concomitant]
     Active Substance: CALCITRIOL
     Dates: start: 20191207
  16. CALCITRIOL. [Concomitant]
     Active Substance: CALCITRIOL
     Dates: start: 20191209
  17. SODIUM BICARBONATE. [Concomitant]
     Active Substance: SODIUM BICARBONATE
     Dates: start: 20190812
  18. GABAPENTIN. [Concomitant]
     Active Substance: GABAPENTIN
     Dates: start: 20191209
  19. GABAPENTIN. [Concomitant]
     Active Substance: GABAPENTIN
     Dates: start: 20200217
  20. SERTRALINE [Concomitant]
     Active Substance: SERTRALINE HYDROCHLORIDE
     Dates: start: 20200309
  21. ENALAPRIL [Concomitant]
     Active Substance: ENALAPRIL
     Dates: start: 20200207
  22. COLCHICINE. [Concomitant]
     Active Substance: COLCHICINE
  23. CLONIDINE. [Concomitant]
     Active Substance: CLONIDINE
     Dates: start: 20200207
  24. APAP/CODEINE [Concomitant]
     Active Substance: ACETAMINOPHEN\CODEINE PHOSPHATE
     Dosage: 300-30 MG
     Dates: start: 20191207
  25. VELTASSA [Suspect]
     Active Substance: PATIROMER
     Indication: HYPERKALAEMIA
     Route: 048
     Dates: start: 20170511
  26. ESTRADIOL. [Concomitant]
     Active Substance: ESTRADIOL
     Dates: start: 20190124
  27. CLONIDINE. [Concomitant]
     Active Substance: CLONIDINE
     Dates: start: 20200210
  28. ENALAPRIL [Concomitant]
     Active Substance: ENALAPRIL
     Dates: start: 20191109
  29. LEVOTHYROXIN [Concomitant]
     Active Substance: LEVOTHYROXINE
     Dates: start: 20191109, end: 20200108
  30. LEVOTHYROXIN [Concomitant]
     Active Substance: LEVOTHYROXINE
     Dates: start: 20191111
  31. TIZANIDINE. [Concomitant]
     Active Substance: TIZANIDINE
     Dates: start: 20191207
  32. LORATADINE. [Concomitant]
     Active Substance: LORATADINE
     Dates: start: 20190913
  33. APAP/CODEINE [Concomitant]
     Active Substance: ACETAMINOPHEN\CODEINE PHOSPHATE
     Dosage: 300-30 MG
     Dates: start: 20191209

REACTIONS (2)
  - Product dose omission issue [Not Recovered/Not Resolved]
  - Shoulder operation [Unknown]

NARRATIVE: CASE EVENT DATE: 20191210
